FAERS Safety Report 7361133-3 (Version None)
Quarter: 2011Q1

REPORT INFORMATION
  Report Type: 
  Country: None (occurrence: None)
  Receive Date: 20110318
  Receipt Date: 20110309
  Transmission Date: 20110831
  Serious: Yes (Other)
  Sender: FDA-Public Use
  Company Number: JP-ROCHE-765775

PATIENT
  Age: 70 Year
  Sex: Female

DRUGS (4)
  1. CYCLOPHOSPHAMIDE [Suspect]
     Dosage: DOSAGE IS UNCERTAIN.
     Route: 065
  2. PACLITAXEL [Concomitant]
     Dosage: DOSAGE IS UNCERTAIN
     Route: 041
  3. EPIRUBICIN HYDROCHLORIDE [Concomitant]
     Dosage: DOSAGE IS UNCERTAIN.
     Route: 041
  4. XELODA [Suspect]
     Indication: BREAST CANCER
     Route: 048

REACTIONS (3)
  - MYASTHENIC SYNDROME [None]
  - ANAEMIA [None]
  - SMALL CELL LUNG CANCER STAGE UNSPECIFIED [None]
